FAERS Safety Report 25593277 (Version 3)
Quarter: 2025Q3

REPORT INFORMATION
  Report Type: Spontaneous
  Country: EU (occurrence: EU)
  Receive Date: 20250722
  Receipt Date: 20250922
  Transmission Date: 20251021
  Serious: Yes (Hospitalization, Other)
  Sender: ELI LILLY AND COMPANY
  Company Number: EU-VIPHPROD-QUE-535-2025

PATIENT
  Age: 26 Year
  Sex: Male

DRUGS (5)
  1. TIRZEPATIDE [Interacting]
     Active Substance: TIRZEPATIDE
     Indication: Obesity
     Dosage: 2.5 MG, WEEKLY (1/W)
     Route: 058
  2. QUETIAPINE [Interacting]
     Active Substance: QUETIAPINE
     Indication: Depression
     Dosage: 50 MG, DAILY
     Route: 048
  3. QUETIAPINE [Interacting]
     Active Substance: QUETIAPINE
     Indication: Sleep disorder
  4. SERTRALINE [Interacting]
     Active Substance: SERTRALINE HYDROCHLORIDE
     Indication: Depression
     Dosage: 100 MG, DAILY
     Route: 048
  5. SERTRALINE [Interacting]
     Active Substance: SERTRALINE HYDROCHLORIDE
     Indication: Sleep disorder

REACTIONS (2)
  - Drug interaction [Recovered/Resolved]
  - Pancreatitis acute [Recovered/Resolved]
